FAERS Safety Report 8006662-4 (Version None)
Quarter: 2011Q4

REPORT INFORMATION
  Report Type: 
  Country: None (occurrence: None)
  Receive Date: 20111227
  Receipt Date: 20111216
  Transmission Date: 20120403
  Serious: No
  Sender: FDA-Public Use
  Company Number: US-BAYER-2011-122576

PATIENT
  Sex: Female

DRUGS (2)
  1. AVELOX [Suspect]
     Dosage: 400 MG, QD
     Route: 048
  2. PREDNISONE TAB [Concomitant]

REACTIONS (1)
  - INSOMNIA [None]
